FAERS Safety Report 12266743 (Version 1)
Quarter: 2016Q2

REPORT INFORMATION
  Report Type: Spontaneous
  Country: GB (occurrence: GB)
  Receive Date: 20160414
  Receipt Date: 20160414
  Transmission Date: 20160815
  Serious: Yes (Other)
  Sender: FDA-Public Use
  Company Number: GB-AUROBINDO-AUR-APL-2016-04441

PATIENT
  Sex: Male

DRUGS (1)
  1. RIBAVIRIN. [Suspect]
     Active Substance: RIBAVIRIN
     Indication: HEPATITIS C
     Route: 048

REACTIONS (8)
  - Anger [Recovering/Resolving]
  - Vomiting [Recovering/Resolving]
  - Aggression [Recovering/Resolving]
  - Chest pain [Recovering/Resolving]
  - Diarrhoea [Recovering/Resolving]
  - Hallucination [Recovering/Resolving]
  - Personality change [Recovering/Resolving]
  - Palpitations [Recovering/Resolving]
